FAERS Safety Report 8068017-6 (Version None)
Quarter: 2012Q1

REPORT INFORMATION
  Report Type: 
  Country: None (occurrence: None)
  Receive Date: 20120124
  Receipt Date: 20110923
  Transmission Date: 20120608
  Serious: No
  Sender: FDA-Public Use
  Company Number: US-AMGEN-USASP2011049576

PATIENT
  Age: 69 Year
  Sex: Female

DRUGS (7)
  1. AMLODIPINE [Concomitant]
  2. PROLIA [Suspect]
     Indication: OSTEOPOROSIS POSTMENOPAUSAL
     Dosage: 60 MG, Q6MO
     Dates: start: 20110725, end: 20110101
  3. FLOVENT [Concomitant]
  4. PROAIR HFA [Concomitant]
  5. PRAVASTATIN [Concomitant]
  6. SPIRIVA [Concomitant]
  7. COMBIVENT [Concomitant]

REACTIONS (5)
  - SENSITIVITY OF TEETH [None]
  - PAIN IN JAW [None]
  - NASOPHARYNGITIS [None]
  - EAR DISCOMFORT [None]
  - INJECTION SITE PAIN [None]
